FAERS Safety Report 11490526 (Version 1)
Quarter: 2015Q3

REPORT INFORMATION
  Report Type: Spontaneous
  Country: GB (occurrence: GB)
  Receive Date: 20150910
  Receipt Date: 20150910
  Transmission Date: 20151125
  Serious: Yes (Hospitalization)
  Sender: FDA-Public Use
  Company Number: PHHY2015GB108358

PATIENT
  Age: 51 Year
  Sex: Female

DRUGS (1)
  1. FILGRASTIM [Suspect]
     Active Substance: FILGRASTIM
     Indication: AGRANULOCYTOSIS
     Dosage: 0.3 MG, QD
     Route: 065

REACTIONS (3)
  - Vascular injury [Recovered/Resolved]
  - Hyperviscosity syndrome [Recovered/Resolved]
  - Leukocytosis [Recovered/Resolved]
